FAERS Safety Report 23788241 (Version 1)
Quarter: 2024Q2

REPORT INFORMATION
  Report Type: Spontaneous
  Country: US (occurrence: US)
  Receive Date: 20240426
  Receipt Date: 20240426
  Transmission Date: 20240716
  Serious: No
  Sender: FDA-Public Use
  Company Number: US-BEH-2024171414

PATIENT
  Sex: Female

DRUGS (4)
  1. HIZENTRA [Suspect]
     Active Substance: HUMAN IMMUNOGLOBULIN G
     Indication: Hypogammaglobulinaemia
     Dosage: 10 G, QOW
     Route: 058
     Dates: start: 202310
  2. CLONAZEPAM [Concomitant]
     Active Substance: CLONAZEPAM
  3. KINERET [Concomitant]
     Active Substance: ANAKINRA
  4. LACOSAMIDE [Concomitant]
     Active Substance: LACOSAMIDE
     Dosage: 150 UNK

REACTIONS (3)
  - Sinusitis [Recovered/Resolved]
  - Fatigue [Unknown]
  - Infusion site pruritus [Recovered/Resolved]
